FAERS Safety Report 14765535 (Version 2)
Quarter: 2018Q3

REPORT INFORMATION
  Report Type: Spontaneous
  Country: JP (occurrence: JP)
  Receive Date: 20180416
  Receipt Date: 20180828
  Transmission Date: 20181010
  Serious: Yes (Hospitalization, Other)
  Sender: FDA-Public Use
  Company Number: JP-BAYER-2018-068265

PATIENT
  Age: 65 Year
  Sex: Male

DRUGS (5)
  1. NEXAVAR [Suspect]
     Active Substance: SORAFENIB
     Dosage: 400MG DAILY
     Route: 048
     Dates: start: 201609, end: 201610
  2. STIVARGA [Suspect]
     Active Substance: REGORAFENIB
     Indication: HEPATOCELLULAR CARCINOMA
     Dosage: 160 MG, QD
     Route: 048
     Dates: start: 20171101, end: 20171107
  3. STIVARGA [Suspect]
     Active Substance: REGORAFENIB
     Indication: HEPATOCELLULAR CARCINOMA
     Dosage: 120 MG, QD
     Route: 048
     Dates: start: 20171108, end: 20171127
  4. STIVARGA [Suspect]
     Active Substance: REGORAFENIB
     Indication: HEPATOCELLULAR CARCINOMA
     Dosage: 120 MG, QD
     Route: 048
     Dates: start: 20171222, end: 20180508
  5. NEXAVAR [Suspect]
     Active Substance: SORAFENIB
     Dosage: 800MG DAILY
     Route: 048
     Dates: start: 201610, end: 20171031

REACTIONS (3)
  - Haemoptysis [Recovered/Resolved]
  - Metastases to lung [None]
  - Haemorrhage [None]

NARRATIVE: CASE EVENT DATE: 20171128
